FAERS Safety Report 8570506 (Version 3)
Quarter: 2013Q2

REPORT INFORMATION
  Report Type: Spontaneous
  Country: US (occurrence: US)
  Receive Date: 20120521
  Receipt Date: 20130620
  Transmission Date: 20140414
  Serious: Yes (Other)
  Sender: FDA-Public Use
  Company Number: US-UCBSA-057302

PATIENT
  Age: 43 Year
  Sex: Male

DRUGS (1)
  1. KEPPRA XR [Suspect]
     Indication: EPILEPSY
     Dates: end: 20121002

REACTIONS (6)
  - Myocardial infarction [Recovered/Resolved]
  - Convulsion [Recovered/Resolved]
  - Fall [Recovered/Resolved]
  - Ankle fracture [Recovered/Resolved]
  - Incontinence [Recovered/Resolved]
  - Inappropriate schedule of drug administration [Recovered/Resolved]
